FAERS Safety Report 6389185-8 (Version None)
Quarter: 2009Q4

REPORT INFORMATION
  Report Type: 
  Country: None (occurrence: None)
  Receive Date: 20091006
  Receipt Date: 20090922
  Transmission Date: 20100525
  Serious: Yes (Other)
  Sender: FDA-Public Use
  Company Number: PHHY2009GB38325

PATIENT
  Sex: Female

DRUGS (5)
  1. FEMARA [Suspect]
     Dosage: UNK
     Route: 048
  2. GLUCOSAMINE [Concomitant]
     Dosage: 600 MG, 2 TABS DAILY
     Route: 048
  3. COD-LIVER OIL [Concomitant]
     Dosage: UNK
  4. AMITRIPTYLINE [Concomitant]
     Dosage: 10 MG, QD
  5. CALCIUM D3 [Concomitant]

REACTIONS (6)
  - ARTHRALGIA [None]
  - BURNING SENSATION [None]
  - ERYTHEMA [None]
  - HOT FLUSH [None]
  - LIPOMA [None]
  - PAIN [None]
